FAERS Safety Report 5419018-5 (Version None)
Quarter: 2007Q3

REPORT INFORMATION
  Report Type: 
  Country: None (occurrence: None)
  Receive Date: 20070817
  Receipt Date: 20070810
  Transmission Date: 20080115
  Serious: Yes (Other)
  Sender: FDA-Public Use
  Company Number: US-PFIZER INC-2007067081

PATIENT
  Sex: Male
  Weight: 107 kg

DRUGS (2)
  1. VIAGRA [Suspect]
     Indication: ERECTILE DYSFUNCTION
  2. MICARDIS [Concomitant]

REACTIONS (3)
  - BLINDNESS [None]
  - MACULAR DEGENERATION [None]
  - UNEVALUABLE EVENT [None]
